FAERS Safety Report 6958518-3 (Version None)
Quarter: 2010Q3

REPORT INFORMATION
  Report Type: 
  Country: None (occurrence: None)
  Receive Date: 20100831
  Receipt Date: 20100820
  Transmission Date: 20110219
  Serious: Yes (Other)
  Sender: FDA-Public Use
  Company Number: JP-ROCHE-722629

PATIENT
  Age: 63 Year
  Sex: Male

DRUGS (9)
  1. VESANOID [Suspect]
     Indication: ACUTE PROMYELOCYTIC LEUKAEMIA
     Route: 048
     Dates: start: 20100721
  2. COTRIM [Suspect]
     Dosage: DOSAGE IS UNCERTAIN.  DOSE FORM: PERORAL AGENT
     Route: 048
  3. POLYMYXIN-B-SULFATE [Suspect]
     Dosage: DOSAGE IS UNCERTAIN.
     Route: 065
  4. FUNGIZONE [Suspect]
     Dosage: DOSAGE IS UNCERTAIN
     Route: 048
  5. HICALIQ [Suspect]
     Dosage: DRUG NAME: HICALIQ RF (INTRAVENOUS HYPERALIMENTATIVE BASIC SOLUTION), DOSAGE UNCERTAIN
     Route: 042
  6. AMLODIPINE BESYLATE [Suspect]
     Dosage: DOSAGE IS UNCERTAIN
     Route: 048
  7. REMINARON [Suspect]
     Dosage: DOSAGE IS UNCERTAIN
     Route: 042
  8. MEROPENEM [Suspect]
     Dosage: DOSAGE IS UNCERTAIN
     Route: 042
  9. OMEPRAL [Suspect]
     Dosage: DOSAGE IS UNCERTAIN
     Route: 065

REACTIONS (1)
  - BLOOD ALKALINE PHOSPHATASE INCREASED [None]
